FAERS Safety Report 24008362 (Version 1)
Quarter: 2024Q2

REPORT INFORMATION
  Report Type: Spontaneous
  Country: SE (occurrence: SE)
  Receive Date: 20240625
  Receipt Date: 20240625
  Transmission Date: 20240716
  Serious: Yes (Hospitalization, Disabling)
  Sender: FDA-Public Use
  Company Number: None

PATIENT
  Age: 75 Year
  Sex: Male

DRUGS (15)
  1. CLOZAPINE [Suspect]
     Active Substance: CLOZAPINE
     Indication: Psychotic disorder
     Dosage: 0+2, 100 MG
     Dates: start: 20140507, end: 20240503
  2. EMPAGLIFLOZIN [Concomitant]
     Active Substance: EMPAGLIFLOZIN
     Dosage: 1X1, JARDIANCE
  3. ENALAPRIL [Concomitant]
     Active Substance: ENALAPRIL
     Dosage: 1X1, 3.82 MG
  4. ACETAMINOPHEN [Concomitant]
     Active Substance: ACETAMINOPHEN
     Dosage: 2 AS REQUIRED, 500 MG
  5. ASPIRIN [Concomitant]
     Active Substance: ASPIRIN
     Dosage: 1X1
  6. OXAZEPAM [Concomitant]
     Active Substance: OXAZEPAM
     Dosage: 1+1+0
  7. OMEPRAZOLE [Concomitant]
     Active Substance: DONEPEZIL HYDROCHLORIDE\OMEPRAZOLE\OMEPRAZOLE MAGNESIUM
     Dosage: 1X1
  8. SCOPOLAMINE [Concomitant]
     Active Substance: SCOPOLAMINE
     Dosage: 1 PATCH, CHANGED EVERY THREE DAYS.
  9. SIMVASTATIN [Concomitant]
     Active Substance: SIMVASTATIN
     Dosage: 1X1
  10. SACUBITRIL\VALSARTAN [Concomitant]
     Active Substance: SACUBITRIL\VALSARTAN
     Dosage: 1X2, ENTRESTO,
  11. VENLAFAXINE [Concomitant]
     Active Substance: VENLAFAXINE HYDROCHLORIDE
     Dosage: 1+1, 42.429 MG
  12. HUMULIN N [Concomitant]
     Active Substance: INSULIN HUMAN
     Dosage: AS PRESCRIBED, HUMULIN NPH KWIKPEN, SUSPENSION FOR INJECTION IN PRE-FILLED PEN
  13. METFORMIN [Concomitant]
     Active Substance: METFORMIN HYDROCHLORIDE
     Dosage: 1X3, 662.9 MG
  14. FELODIPINE [Concomitant]
     Active Substance: FELODIPINE
     Dosage: 1X1
  15. HUMALOG [Concomitant]
     Active Substance: INSULIN LISPRO
     Dosage: AS PRESCRIBED, SOLUTION FOR INJECTION IN CARTRIDGE

REACTIONS (3)
  - Pleural effusion [Unknown]
  - Cardiac failure congestive [Not Recovered/Not Resolved]
  - Ascites [Unknown]

NARRATIVE: CASE EVENT DATE: 20240401
